FAERS Safety Report 6443734-X (Version None)
Quarter: 2009Q4

REPORT INFORMATION
  Report Type: 
  Country: None (occurrence: None)
  Receive Date: 20091117
  Receipt Date: 20091106
  Transmission Date: 20100525
  Serious: Yes (Death, Hospitalization)
  Sender: FDA-Public Use
  Company Number: US-BAXTER-2009BH017069

PATIENT
  Age: 89 Year
  Sex: Male

DRUGS (4)
  1. DIANEAL [Suspect]
     Indication: PERITONEAL DIALYSIS
     Route: 033
     Dates: start: 20070305, end: 20090528
  2. DIANEAL [Suspect]
     Route: 033
     Dates: start: 20090626, end: 20090930
  3. DIANEAL [Suspect]
     Indication: PERITONEAL DIALYSIS
     Route: 033
     Dates: start: 20090529, end: 20090626
  4. DIANEAL [Suspect]
     Route: 033
     Dates: start: 20090630, end: 20090918

REACTIONS (3)
  - DEATH [None]
  - PNEUMONIA [None]
  - RECTAL HAEMORRHAGE [None]
